FAERS Safety Report 9325356 (Version 1)
Quarter: 2013Q2

REPORT INFORMATION
  Report Type: Spontaneous
  Country: US (occurrence: US)
  Receive Date: 20130604
  Receipt Date: 20130604
  Transmission Date: 20140414
  Serious: No
  Sender: FDA-Public Use
  Company Number: US-BIOGENIDEC-2013BI049675

PATIENT
  Age: 54 Year
  Sex: Female

DRUGS (2)
  1. TYSABRI [Suspect]
     Indication: MULTIPLE SCLEROSIS
     Route: 042
     Dates: start: 20130318
  2. ZOLOFT [Concomitant]
     Indication: DEPRESSION
     Dates: start: 1994

REACTIONS (7)
  - Depression [Not Recovered/Not Resolved]
  - Sensory disturbance [Recovered/Resolved]
  - Inappropriate affect [Recovered/Resolved]
  - Feeling abnormal [Recovered/Resolved]
  - Feeling jittery [Not Recovered/Not Resolved]
  - Amnesia [Not Recovered/Not Resolved]
  - Emotional disorder [Unknown]
